FAERS Safety Report 5998187-2 (Version None)
Quarter: 2008Q4

REPORT INFORMATION
  Report Type: 
  Country: None (occurrence: None)
  Receive Date: 20081213
  Receipt Date: 20080625
  Transmission Date: 20090506
  Serious: No
  Sender: FDA-Public Use
  Company Number: US-AMGEN-KDL289980

PATIENT
  Sex: Female

DRUGS (2)
  1. ENBREL [Suspect]
     Indication: PSORIATIC ARTHROPATHY
     Route: 058
     Dates: start: 20080408
  2. ENBREL [Suspect]
     Indication: PSORIASIS

REACTIONS (4)
  - DRUG INEFFECTIVE [None]
  - INCREASED APPETITE [None]
  - PSORIASIS [None]
  - WEIGHT INCREASED [None]
